FAERS Safety Report 8565355-5 (Version None)
Quarter: 2012Q3

REPORT INFORMATION
  Report Type: 
  Country: None (occurrence: None)
  Receive Date: 20120724
  Receipt Date: 20120713
  Transmission Date: 20120928
  Serious: Yes (Hospitalization)
  Sender: FDA-Public Use
  Company Number: DSA_58580_2012

PATIENT
  Age: 79 Year
  Sex: Female

DRUGS (14)
  1. POTASSIUM CHLORIDE [Concomitant]
  2. HEPARIN CALCIUM [Concomitant]
  3. FLAGYL [Suspect]
     Indication: INFECTION
     Dosage: (500 MG TID INTRAVENOUS (NOT OTHERWISE SOECUFUED((
     Route: 042
     Dates: start: 20120531, end: 20120611
  4. PANTOPRAZOLE [Concomitant]
  5. FLUDROCORTISONE ACETATE [Concomitant]
  6. CALCIUM CARBONATE [Concomitant]
  7. CITALOPRAM HYDROBROMIDE [Concomitant]
  8. EXELON [Concomitant]
  9. ACETAMINOPHEN [Concomitant]
  10. FORTRANS [Concomitant]
  11. ROCEPHIN [Suspect]
     Indication: INFECTION
     Dosage: (1 G DAILY INTRAVENOUS (NOT OTHERWISE SPECIFIED))
     Route: 042
     Dates: start: 20120531, end: 20120611
  12. HYDROCORTISONE [Concomitant]
  13. EBIXA [Concomitant]
  14. STRUCTOKABIVEN [Concomitant]

REACTIONS (1)
  - ACUTE GENERALISED EXANTHEMATOUS PUSTULOSIS [None]
